FAERS Safety Report 12560068 (Version 1)
Quarter: 2016Q3

REPORT INFORMATION
  Report Type: Spontaneous
  Country: US (occurrence: US)
  Receive Date: 20160715
  Receipt Date: 20160715
  Transmission Date: 20161109
  Serious: No
  Sender: FDA-Public Use
  Company Number: US-JNJFOC-20160512043

PATIENT
  Sex: Female
  Weight: 90.72 kg

DRUGS (2)
  1. WOMENS ROGAINE [Suspect]
     Active Substance: MINOXIDIL
     Route: 061
  2. WOMENS ROGAINE [Suspect]
     Active Substance: MINOXIDIL
     Indication: ALOPECIA
     Dosage: TO THE LINE ON THE DROPPER
     Route: 061
     Dates: start: 20160330

REACTIONS (2)
  - Off label use [Unknown]
  - Product use issue [Unknown]
